FAERS Safety Report 10262885 (Version 2)
Quarter: 2014Q2

REPORT INFORMATION
  Report Type: Report from Study
  Country: US (occurrence: US)
  Receive Date: 20140626
  Receipt Date: 20140626
  Transmission Date: 20141212
  Serious: Yes (Death)
  Sender: FDA-Public Use
  Company Number: US-MYLANLABS-2013S1021209

PATIENT
  Age: 56 Year
  Sex: Male

DRUGS (12)
  1. CLOZAPINE TABLETS [Suspect]
     Indication: SCHIZOPHRENIA
     Route: 048
     Dates: end: 2013
  2. LISINOPRIL [Concomitant]
  3. CYCLOBENZAPRINE [Concomitant]
  4. ACIPHEX [Concomitant]
  5. PLAVIX [Concomitant]
  6. SIMVASTATIN [Concomitant]
  7. GLIMEPIRIDE [Concomitant]
  8. CELEBREX [Concomitant]
  9. GABAPENTIN [Concomitant]
  10. SINGULAIR [Concomitant]
  11. ADVAIR [Concomitant]
  12. APAP CODEINE [Concomitant]

REACTIONS (1)
  - Death [Fatal]
